FAERS Safety Report 6865454-X (Version None)
Quarter: 2010Q3

REPORT INFORMATION
  Report Type: 
  Country: None (occurrence: None)
  Receive Date: 20100721
  Receipt Date: 20080501
  Transmission Date: 20110219
  Serious: No
  Sender: FDA-Public Use
  Company Number: US-PFIZER INC-2008034972

PATIENT
  Sex: Female
  Weight: 90.9 kg

DRUGS (7)
  1. CHANTIX [Suspect]
     Indication: SMOKING CESSATION THERAPY
     Dates: start: 20080203
  2. ETODOLAC [Concomitant]
  3. VALSARTAN [Concomitant]
  4. SIMVASTATIN [Concomitant]
  5. GABAPENTIN [Concomitant]
  6. MORPHINE [Concomitant]
  7. LORAZEPAM [Concomitant]

REACTIONS (3)
  - HEADACHE [None]
  - MALAISE [None]
  - VOMITING [None]
